FAERS Safety Report 4515319-3 (Version None)
Quarter: 2004Q4

REPORT INFORMATION
  Report Type: 
  Country: None (occurrence: None)
  Receive Date: 20041126
  Receipt Date: 20041112
  Transmission Date: 20050328
  Serious: Yes (Hospitalization)
  Sender: FDA-Public Use
  Company Number: 2004092643

PATIENT
  Sex: Male

DRUGS (8)
  1. SERTRALINE (SERTRALINE) [Suspect]
     Indication: ILL-DEFINED DISORDER
  2. DONEPEZIL HCL [Suspect]
     Indication: ILL-DEFINED DISORDER
     Dosage: 1 I N 1 D
  3. CLONAZEPAM [Suspect]
     Indication: ILL-DEFINED DISORDER
  4. METOPROLOL TARTRATE [Concomitant]
  5. PROCYCLIDINE HYDROCHLORIDE 2MG TAB [Concomitant]
  6. IRBESARTAN [Concomitant]
  7. ACENOCOUMAROL (ACENOCOUMAROL) [Concomitant]
  8. LORMETAZEPAM (LORMETAZEPAM) [Concomitant]

REACTIONS (13)
  - BLOOD SODIUM INCREASED [None]
  - CHOLINERGIC SYNDROME [None]
  - COUGH [None]
  - DEHYDRATION [None]
  - DEMENTIA ALZHEIMER'S TYPE [None]
  - DISORIENTATION [None]
  - DYSKINESIA [None]
  - EXTRAPYRAMIDAL DISORDER [None]
  - NEUROLEPTIC MALIGNANT SYNDROME [None]
  - PARKINSONISM [None]
  - RESPIRATORY TRACT INFECTION [None]
  - RHABDOMYOLYSIS [None]
  - SPEECH DISORDER [None]
